FAERS Safety Report 6752994-7 (Version None)
Quarter: 2010Q2

REPORT INFORMATION
  Report Type: 
  Country: None (occurrence: None)
  Receive Date: 20100602
  Receipt Date: 20100602
  Transmission Date: 20101027
  Serious: Yes (Other)
  Sender: FDA-Public Use
  Company Number: None

PATIENT
  Sex: Male

DRUGS (1)
  1. DOXYCYCLINE [Suspect]

REACTIONS (4)
  - ENDODONTIC PROCEDURE [None]
  - PRODUCT QUALITY ISSUE [None]
  - TOOTH FRACTURE [None]
  - TOOTH INJURY [None]
